FAERS Safety Report 9006707 (Version 1)
Quarter: 2013Q1

REPORT INFORMATION
  Report Type: Spontaneous
  Country: FR (occurrence: FR)
  Receive Date: 20130110
  Receipt Date: 20130110
  Transmission Date: 20140127
  Serious: Yes (Life-Threatening, Hospitalization)
  Sender: FDA-Public Use
  Company Number: FR-ROCHE-1178061

PATIENT
  Age: 84 Year
  Sex: Female

DRUGS (12)
  1. ROCEPHINE [Suspect]
     Indication: PRODUCT USED FOR UNKNOWN INDICATION
     Route: 042
  2. CIFLOX [Suspect]
     Indication: PRODUCT USED FOR UNKNOWN INDICATION
     Route: 065
  3. PIPERACILLINE [Suspect]
     Indication: PRODUCT USED FOR UNKNOWN INDICATION
     Route: 065
  4. SOTALEX [Concomitant]
     Route: 065
  5. LIPANTHYL [Concomitant]
     Route: 065
  6. LASILIX [Concomitant]
     Route: 065
  7. PREVISCAN [Concomitant]
     Dosage: HALF IN EVENING
     Route: 065
  8. DIFFU K [Concomitant]
     Route: 065
  9. TOPALGIC LP [Concomitant]
     Route: 065
  10. COVERSYL [Concomitant]
     Route: 065
  11. CACIT D3 [Concomitant]
     Route: 065
  12. IMPORTAL [Concomitant]
     Route: 065

REACTIONS (2)
  - Confusional state [Recovering/Resolving]
  - Disturbance in attention [Recovering/Resolving]
